FAERS Safety Report 6976339-2 (Version None)
Quarter: 2010Q3

REPORT INFORMATION
  Report Type: 
  Country: None (occurrence: None)
  Receive Date: 20100910
  Receipt Date: 20100901
  Transmission Date: 20110219
  Serious: Yes (Other)
  Sender: FDA-Public Use
  Company Number: JP-ASTRAZENECA-2010SE03405

PATIENT
  Age: 40 Year
  Sex: Male

DRUGS (3)
  1. FOSCAVIR [Suspect]
     Indication: CYTOMEGALOVIRUS CHORIORETINITIS
     Route: 041
  2. FOSCAVIR [Suspect]
     Route: 041
  3. FOSCAVIR [Suspect]
     Route: 041

REACTIONS (2)
  - HYPOGLYCAEMIC SEIZURE [None]
  - RENAL IMPAIRMENT [None]
